FAERS Safety Report 15889875 (Version 1)
Quarter: 2019Q1

REPORT INFORMATION
  Report Type: Spontaneous
  Country: US (occurrence: US)
  Receive Date: 20190130
  Receipt Date: 20190130
  Transmission Date: 20190417
  Serious: No
  Sender: FDA-Public Use
  Company Number: None

PATIENT
  Age: 33 Year
  Sex: Female
  Weight: 67.5 kg

DRUGS (1)
  1. METHYLPHENIDATE ER 54MG (GENERIC FOR CONCERTA) [Suspect]
     Active Substance: METHYLPHENIDATE HYDROCHLORIDE
     Indication: ATTENTION DEFICIT/HYPERACTIVITY DISORDER
     Dosage: ?          QUANTITY:1 TABLET(S);?
     Route: 048
     Dates: start: 20190119

REACTIONS (9)
  - Hostility [None]
  - Product substitution issue [None]
  - Memory impairment [None]
  - Drug ineffective [None]
  - Disturbance in attention [None]
  - Hunger [None]
  - Impaired work ability [None]
  - Therapeutic response changed [None]
  - Anger [None]

NARRATIVE: CASE EVENT DATE: 20190119
